FAERS Safety Report 18959022 (Version 2)
Quarter: 2021Q1

REPORT INFORMATION
  Report Type: Spontaneous
  Country: CN (occurrence: CN)
  Receive Date: 20210302
  Receipt Date: 20210309
  Transmission Date: 20210420
  Serious: Yes (Death, Other)
  Sender: FDA-Public Use
  Company Number: CN-PFIZER INC-2021191452

PATIENT
  Age: 70 Year
  Sex: Female

DRUGS (3)
  1. VANCOMYCIN [Concomitant]
     Active Substance: VANCOMYCIN
     Dosage: 1 G, DAY 2 TO DAY 6 (BOTH THROUGH VENOUS TRANSFUSION)
     Route: 042
  2. IMIPENEM [Concomitant]
     Active Substance: IMIPENEM
     Dosage: 1 G (PER 8 HOURS, THE SECOND DAY ADMISSION TO DAY 12 (BOTH THROUGH VENOUS TRANSFUSION)
     Route: 042
  3. METHOTREXATE. [Suspect]
     Active Substance: METHOTREXATE
     Indication: RHEUMATOID ARTHRITIS
     Dosage: 5 MG, 3X/DAY (21 TIMES HIGHER THAN THE RECOMMENDED DOSE)

REACTIONS (2)
  - Overdose [Fatal]
  - Haemophagocytic lymphohistiocytosis [Fatal]
